FAERS Safety Report 5131573-1 (Version None)
Quarter: 2006Q4

REPORT INFORMATION
  Report Type: 
  Country: None (occurrence: None)
  Receive Date: 20061020
  Receipt Date: 20061013
  Transmission Date: 20070319
  Serious: Yes (Other)
  Sender: FDA-Public Use
  Company Number: US-JNJFOC-20060105228

PATIENT
  Sex: Female
  Weight: 86.18 kg

DRUGS (6)
  1. ORTHO EVRA [Suspect]
     Route: 062
  2. ORTHO EVRA [Suspect]
     Indication: CONTRACEPTION
     Route: 062
  3. TRINESSA [Suspect]
     Indication: CONTRACEPTION
     Route: 048
  4. SEASONALE [Suspect]
     Indication: CONTRACEPTION
  5. PHENTERMINE [Concomitant]
  6. TRIAMTERENE [Concomitant]
     Dosage: 37.5/25 MG TABLET QD

REACTIONS (6)
  - ANXIETY [None]
  - DEPRESSION [None]
  - FALL [None]
  - HAEMATOMA [None]
  - RADICULOPATHY [None]
  - TACHYCARDIA [None]
